FAERS Safety Report 4471955-4 (Version None)
Quarter: 2004Q4

REPORT INFORMATION
  Report Type: 
  Country: None (occurrence: None)
  Receive Date: 20041007
  Receipt Date: 20041001
  Transmission Date: 20050328
  Serious: Yes (Hospitalization)
  Sender: FDA-Public Use
  Company Number: 040917-0000417

PATIENT
  Age: 38 Year
  Sex: Female

DRUGS (1)
  1. TRANXENE [Suspect]
     Indication: ANXIETY
     Dosage: 50 MG; QD; PO
     Route: 048

REACTIONS (4)
  - DRUG EXPOSURE DURING PREGNANCY [None]
  - INTENTIONAL OVERDOSE [None]
  - MATERNAL CONDITION AFFECTING FOETUS [None]
  - SOMNOLENCE [None]
